FAERS Safety Report 17505207 (Version 1)
Quarter: 2020Q1

REPORT INFORMATION
  Report Type: Spontaneous
  Country: CA (occurrence: CA)
  Receive Date: 20200306
  Receipt Date: 20200306
  Transmission Date: 20200409
  Serious: Yes (Life-Threatening, Hospitalization, Other)
  Sender: FDA-Public Use
  Company Number: CA-LUPIN PHARMACEUTICALS INC.-2019-08389

PATIENT
  Age: 48 Year
  Sex: Male

DRUGS (1)
  1. CLOMIPRAMINE HYDROCHLORIDE. [Suspect]
     Active Substance: CLOMIPRAMINE HYDROCHLORIDE
     Indication: MENTAL DISORDER
     Dosage: UNK
     Route: 065

REACTIONS (4)
  - Overdose [Unknown]
  - Toxicity to various agents [Recovering/Resolving]
  - Arrhythmia [Recovering/Resolving]
  - Hypotension [Recovering/Resolving]
